FAERS Safety Report 15997887 (Version 2)
Quarter: 2019Q1

REPORT INFORMATION
  Report Type: Report from Study
  Country: US (occurrence: US)
  Receive Date: 20190222
  Receipt Date: 20190301
  Transmission Date: 20190418
  Serious: Yes (Death, Hospitalization)
  Sender: FDA-Public Use
  Company Number: US-ACTELION-A-NJ2017-154103

PATIENT
  Age: 70 Year
  Sex: Male

DRUGS (2)
  1. OPSUMIT [Suspect]
     Active Substance: MACITENTAN
     Indication: PULMONARY ARTERIAL HYPERTENSION
     Dosage: 10 MG, QD
     Route: 048
     Dates: start: 20170331, end: 20190120
  2. OXYGEN. [Concomitant]
     Active Substance: OXYGEN

REACTIONS (24)
  - Immunosuppression [Unknown]
  - Cardiac failure congestive [Unknown]
  - Condition aggravated [Not Recovered/Not Resolved]
  - Renal transplant [Unknown]
  - Hyponatraemia [Fatal]
  - Acute kidney injury [Unknown]
  - Cough [Not Recovered/Not Resolved]
  - Adjustment disorder with mixed anxiety and depressed mood [Unknown]
  - Pulmonary arterial hypertension [Not Recovered/Not Resolved]
  - Oxygen saturation decreased [Not Recovered/Not Resolved]
  - Oxygen therapy [Unknown]
  - Shock [Unknown]
  - Cardiac failure [Unknown]
  - Liver transplant [Unknown]
  - Asterixis [Unknown]
  - Dyspnoea [Unknown]
  - Fatigue [Unknown]
  - Azotaemia [Unknown]
  - Asthenia [Unknown]
  - Epistaxis [Unknown]
  - Complication associated with device [Unknown]
  - Chronic kidney disease [Unknown]
  - Hypoxia [Fatal]
  - Atrial fibrillation [Unknown]

NARRATIVE: CASE EVENT DATE: 20170424
